FAERS Safety Report 8334643-X (Version None)
Quarter: 2012Q2

REPORT INFORMATION
  Report Type: 
  Country: None (occurrence: None)
  Receive Date: 20120503
  Receipt Date: 20120425
  Transmission Date: 20120825
  Serious: No
  Sender: FDA-Public Use
  Company Number: US-JNJFOC-20120302396

PATIENT
  Sex: Male
  Weight: 99.79 kg

DRUGS (4)
  1. FENTANYL-100 [Suspect]
     Indication: NEURALGIA
     Route: 062
     Dates: start: 20110101
  2. UNKNOWN MEDICATION [Concomitant]
     Indication: DIABETES MELLITUS
     Route: 065
  3. UNKNOWN MEDICATION [Concomitant]
     Indication: NEUROPATHY PERIPHERAL
     Route: 065
  4. FENTANYL-100 [Suspect]
     Indication: BACK PAIN
     Route: 062
     Dates: start: 20110101

REACTIONS (2)
  - WRONG TECHNIQUE IN DRUG USAGE PROCESS [None]
  - DRUG ADMINISTERED AT INAPPROPRIATE SITE [None]
